FAERS Safety Report 18987136 (Version 2)
Quarter: 2021Q1

REPORT INFORMATION
  Report Type: Spontaneous
  Country: US (occurrence: US)
  Receive Date: 20210309
  Receipt Date: 20210318
  Transmission Date: 20210420
  Serious: Yes (Other)
  Sender: FDA-Public Use
  Company Number: US-PFIZER INC-2021214212

PATIENT
  Age: 58 Year
  Sex: Male

DRUGS (1)
  1. DOXYCYCLINE HYCLATE. [Suspect]
     Active Substance: DOXYCYCLINE HYCLATE
     Indication: RELAPSING FEVER
     Dosage: 100 MG, 2X/DAY (TWO TIMES PER DAY FOR A PLANNED 10?DAY)
     Route: 048

REACTIONS (6)
  - Delirium [Unknown]
  - Tachycardia [Unknown]
  - Jarisch-Herxheimer reaction [Unknown]
  - Pyrexia [Unknown]
  - Hyperhidrosis [Unknown]
  - Inflammation [Unknown]
